FAERS Safety Report 21492274 (Version 1)
Quarter: 2022Q4

REPORT INFORMATION
  Report Type: Spontaneous
  Country: US (occurrence: US)
  Receive Date: 20221021
  Receipt Date: 20221021
  Transmission Date: 20230113
  Serious: No
  Sender: FDA-Public Use
  Company Number: US-PERRIGO-22US005160

PATIENT
  Age: 53 Year
  Sex: Female
  Weight: 68.027 kg

DRUGS (2)
  1. NICOTINE POLACRILEX [Suspect]
     Active Substance: NICOTINE
     Indication: Smoking cessation therapy
     Dosage: 4 MG, EVERY 1 TO 2 HOURS
     Route: 002
     Dates: start: 20220323, end: 20220401
  2. LEVOTHYROXINE [Concomitant]
     Active Substance: LEVOTHYROXINE
     Indication: Autoimmune thyroiditis
     Dosage: UNK
     Route: 065
     Dates: start: 2002

REACTIONS (2)
  - Tongue discolouration [Recovering/Resolving]
  - Tooth discolouration [Recovered/Resolved]

NARRATIVE: CASE EVENT DATE: 20220326
